FAERS Safety Report 6582778-4 (Version None)
Quarter: 2010Q1

REPORT INFORMATION
  Report Type: 
  Country: None (occurrence: None)
  Receive Date: 20100216
  Receipt Date: 20100204
  Transmission Date: 20100710
  Serious: Yes (Hospitalization, Other)
  Sender: FDA-Public Use
  Company Number: MT-PFIZER INC-2010015005

PATIENT
  Age: 35 Year
  Sex: Male

DRUGS (1)
  1. CEFPODOXIME PROXETIL [Suspect]
     Indication: RESPIRATORY DISORDER
     Dosage: 100 MG
     Route: 048

REACTIONS (4)
  - ATAXIA [None]
  - HYPERREFLEXIA [None]
  - NYSTAGMUS [None]
  - PYREXIA [None]
